FAERS Safety Report 14896284 (Version 1)
Quarter: 2018Q2

REPORT INFORMATION
  Report Type: Spontaneous
  Country: US (occurrence: US)
  Receive Date: 20180515
  Receipt Date: 20180515
  Transmission Date: 20180711
  Serious: Yes (Hospitalization, Other)
  Sender: FDA-Public Use
  Company Number: US-SA-2018SA127928

PATIENT
  Age: 46 Year
  Sex: Male

DRUGS (1)
  1. LEMTRADA [Suspect]
     Active Substance: ALEMTUZUMAB
     Route: 065
     Dates: start: 201706

REACTIONS (13)
  - CSF protein increased [Unknown]
  - Personality change [Unknown]
  - Nuclear magnetic resonance imaging brain abnormal [Unknown]
  - Cognitive disorder [Unknown]
  - Ataxia [Unknown]
  - Mental status changes [Unknown]
  - General physical health deterioration [Unknown]
  - Dysphagia [Unknown]
  - Multiple sclerosis relapse [Unknown]
  - Visual impairment [Unknown]
  - Migraine [Unknown]
  - CSF white blood cell count positive [Unknown]
  - White matter lesion [Unknown]

NARRATIVE: CASE EVENT DATE: 201708
